FAERS Safety Report 5492559-0 (Version None)
Quarter: 2007Q4

REPORT INFORMATION
  Report Type: 
  Country: None (occurrence: None)
  Receive Date: 20071022
  Receipt Date: 20071017
  Transmission Date: 20080405
  Serious: Yes (Death, Hospitalization, Other)
  Sender: FDA-Public Use
  Company Number: DE-ABBOTT-07P-062-0415018-00

PATIENT
  Sex: Male
  Weight: 73 kg

DRUGS (16)
  1. HUMIRA [Suspect]
     Indication: RHEUMATOID ARTHRITIS
     Route: 058
     Dates: start: 20070323, end: 20070407
  2. HUMIRA [Suspect]
     Dosage: CUMULATIVE DOSE 320MG
     Route: 058
     Dates: start: 20070511
  3. METHOTREXATE [Suspect]
     Indication: RHEUMATOID ARTHRITIS
     Dosage: 10-20 MG/WO, ONGOING BUT PAUSED DURING AN UNKNOWN (SHORT) PERIOD
     Route: 042
     Dates: start: 20040901, end: 20070820
  4. METHOTREXATE [Suspect]
     Dates: start: 20070820
  5. INFLIXIMAB [Suspect]
     Indication: RHEUMATOID ARTHRITIS
     Dates: start: 20060401, end: 20070101
  6. OLMESARTAN/HCT [Concomitant]
     Indication: HYPERTENSION
     Dosage: 20 MG/12.5 MG
     Route: 048
     Dates: start: 20070701
  7. PREDNISOLONE [Concomitant]
     Indication: RHEUMATOID ARTHRITIS
     Route: 048
     Dates: start: 20040901
  8. PREDNISOLONE [Concomitant]
     Dates: start: 20070701
  9. BISOPROLOL FUMARATE [Concomitant]
     Indication: HYPERTENSION
     Route: 048
     Dates: start: 20061101
  10. AMLODIPINE [Concomitant]
     Indication: HYPERTENSION
     Route: 048
     Dates: start: 20051001
  11. TORSEMIDE [Concomitant]
     Indication: HYPERTENSION
     Route: 048
     Dates: start: 20070501
  12. ALLOPURINOL [Concomitant]
     Indication: GOUTY ARTHRITIS
     Route: 048
     Dates: start: 20061101
  13. ULTRACET [Concomitant]
     Indication: RHEUMATOID ARTHRITIS
     Dosage: 37.5/300MG
     Route: 048
     Dates: start: 20060901
  14. ESOMEPRAZOLE [Concomitant]
     Indication: DRUG USE FOR UNKNOWN INDICATION
     Dates: start: 20061001
  15. OYSTER SHELL CALCIUM WITH VITAMIN D [Concomitant]
     Indication: DRUG USE FOR UNKNOWN INDICATION
     Dates: start: 20040901
  16. TAMSULOSIN HYDROCHLORIDE [Concomitant]
     Indication: DRUG USE FOR UNKNOWN INDICATION
     Dates: start: 20070101

REACTIONS (5)
  - BRONCHITIS [None]
  - FLUID INTAKE REDUCED [None]
  - OEDEMA PERIPHERAL [None]
  - RENAL FAILURE [None]
  - RIGHT VENTRICULAR FAILURE [None]
